FAERS Safety Report 9262129 (Version 3)
Quarter: 2013Q2

REPORT INFORMATION
  Report Type: Spontaneous
  Country: DE (occurrence: DE)
  Receive Date: 20130430
  Receipt Date: 20130628
  Transmission Date: 20140414
  Serious: Yes (Life-Threatening, Hospitalization)
  Sender: FDA-Public Use
  Company Number: DE-GE HEALTHCARE MEDICAL DIAGNOSTICS-VISP-NO-1304S-0575

PATIENT
  Age: 53 Year
  Sex: Male
  Weight: 63 kg

DRUGS (2)
  1. VISIPAQUE [Suspect]
     Indication: PULMONARY MASS
     Route: 042
     Dates: start: 20130412, end: 20130412
  2. VISIPAQUE [Suspect]
     Indication: DIAGNOSTIC PROCEDURE

REACTIONS (3)
  - Bronchial obstruction [Unknown]
  - Respiratory failure [Unknown]
  - Urticaria [Unknown]
